FAERS Safety Report 5581341-1 (Version None)
Quarter: 2008Q1

REPORT INFORMATION
  Report Type: 
  Country: None (occurrence: None)
  Receive Date: 20080104
  Receipt Date: 20080102
  Transmission Date: 20080703
  Serious: Yes (Other)
  Sender: FDA-Public Use
  Company Number: PHEH2007US16049

PATIENT
  Age: 59 Year
  Sex: Male

DRUGS (16)
  1. TIKOSYN [Suspect]
     Indication: ATRIAL FIBRILLATION
     Dosage: 500 MG, BID
     Route: 048
     Dates: start: 20060601
  2. LASIX [Concomitant]
     Dosage: 20 MG, UNK
  3. TEKTURNA [Suspect]
     Indication: HYPERTENSION
     Dosage: 150 MG, QD
     Route: 048
     Dates: start: 20071203, end: 20071213
  4. COREG [Concomitant]
     Indication: HYPERTENSION
     Dosage: 25 MG, BID
     Route: 048
     Dates: start: 20060401
  5. LISINOPRIL [Concomitant]
     Indication: HYPERTENSION
     Dosage: 60 MG, QD
     Dates: start: 20060101
  6. METFORMIN [Concomitant]
     Indication: DIABETES MELLITUS
     Dosage: 1000 MG, BID
     Dates: start: 20060101
  7. LORTAB [Concomitant]
     Dosage: 75 MG, QID
  8. LEVOXYL [Concomitant]
     Dosage: 0.15 MG, QD
  9. PREVACID [Concomitant]
     Dosage: 30 MG, BID
  10. PLAVIX [Concomitant]
     Dosage: 75 MG, UNK
  11. FELDENE [Concomitant]
     Dosage: 20 MG, UNK
  12. NPH INSULIN [Concomitant]
     Indication: DIABETES MELLITUS
     Dosage: 45 U, BID
  13. PROZAC [Concomitant]
     Dosage: 10 MG, QD
  14. ZANTAC [Concomitant]
     Dosage: 150 MG, BID
  15. FENTANYL [Concomitant]
     Dosage: 25 MG, Q 72 HOURS
  16. SPIRONOLACTONE [Concomitant]
     Dosage: UNK, UNK

REACTIONS (2)
  - ATRIAL FIBRILLATION [None]
  - DRUG INTERACTION [None]
